FAERS Safety Report 18009171 (Version 1)
Quarter: 2020Q3

REPORT INFORMATION
  Report Type: Spontaneous
  Country: US (occurrence: US)
  Receive Date: 20200710
  Receipt Date: 20200710
  Transmission Date: 20201103
  Serious: No
  Sender: FDA-Public Use
  Company Number: US-SAOL THERAPEUTICS-2020SAO00155

PATIENT
  Age: 13 Year
  Sex: Female

DRUGS (6)
  1. LIORESAL [Suspect]
     Active Substance: BACLOFEN
     Dosage: 188 ?G, \DAY
     Route: 037
     Dates: start: 20200403, end: 2020
  2. LIORESAL [Suspect]
     Active Substance: BACLOFEN
     Dosage: UNK ?G, \DAY
     Route: 037
     Dates: end: 20200403
  3. LIORESAL [Suspect]
     Active Substance: BACLOFEN
     Dosage: 222 ?G, \DAY
     Route: 037
     Dates: start: 2020
  4. LIORESAL [Suspect]
     Active Substance: BACLOFEN
     Dosage: 250 ?G, \DAY
     Route: 037
     Dates: start: 2020, end: 20200427
  5. LIORESAL [Suspect]
     Active Substance: BACLOFEN
     Dosage: 302.41 ?G, \DAY
     Route: 037
     Dates: start: 20200427, end: 20200507
  6. LIORESAL [Suspect]
     Active Substance: BACLOFEN
     Dosage: UNK ?G, \DAY
     Route: 037
     Dates: start: 20200507

REACTIONS (9)
  - Drug withdrawal syndrome [Not Recovered/Not Resolved]
  - Tremor [Not Recovered/Not Resolved]
  - Cold sweat [Not Recovered/Not Resolved]
  - Constipation [Unknown]
  - Toothache [Unknown]
  - Dystonia [Not Recovered/Not Resolved]
  - Flushing [Not Recovered/Not Resolved]
  - Anal incontinence [Unknown]
  - Hyperhidrosis [Not Recovered/Not Resolved]

NARRATIVE: CASE EVENT DATE: 2020
